FAERS Safety Report 11422459 (Version 1)
Quarter: 2015Q3

REPORT INFORMATION
  Report Type: Report from Study
  Country: US (occurrence: US)
  Receive Date: 20150827
  Receipt Date: 20150827
  Transmission Date: 20151125
  Serious: Yes (Hospitalization)
  Sender: FDA-Public Use
  Company Number: US-BIOGENIDEC-2015BI115737

PATIENT
  Age: 70 Year
  Sex: Male

DRUGS (1)
  1. TYSABRI [Suspect]
     Active Substance: NATALIZUMAB
     Indication: MULTIPLE SCLEROSIS
     Route: 042
     Dates: start: 20120209

REACTIONS (6)
  - Fall [Recovered/Resolved]
  - Muscle spasms [Recovered/Resolved]
  - Urinary retention [Recovered/Resolved]
  - Rib fracture [Recovered/Resolved]
  - Intervertebral disc protrusion [Recovered/Resolved]
  - Spinal column stenosis [Recovered/Resolved]

NARRATIVE: CASE EVENT DATE: 201504
